FAERS Safety Report 24297212 (Version 1)
Quarter: 2024Q3

REPORT INFORMATION
  Report Type: Spontaneous
  Country: US (occurrence: US)
  Receive Date: 20240909
  Receipt Date: 20240909
  Transmission Date: 20241016
  Serious: No
  Sender: ELI LILLY AND CO
  Company Number: US-ELI_LILLY_AND_COMPANY-US202409003887

PATIENT
  Age: 53 Year
  Sex: Female

DRUGS (1)
  1. TALTZ [Suspect]
     Active Substance: IXEKIZUMAB
     Indication: Product used for unknown indication
     Dosage: 160 MG (LOADING DOSE)
     Route: 065
     Dates: start: 20240829

REACTIONS (5)
  - Fatigue [Unknown]
  - Asthenia [Unknown]
  - Limb discomfort [Unknown]
  - Insomnia [Unknown]
  - Nausea [Unknown]
